FAERS Safety Report 6804079-9 (Version None)
Quarter: 2010Q2

REPORT INFORMATION
  Report Type: 
  Country: None (occurrence: None)
  Receive Date: 20100628
  Receipt Date: 20070202
  Transmission Date: 20101027
  Serious: No
  Sender: FDA-Public Use
  Company Number: US-PFIZER INC-2006095228

PATIENT
  Sex: Female

DRUGS (5)
  1. XALATAN [Suspect]
     Indication: NORMAL TENSION GLAUCOMA
     Dosage: ONE DROP EACH EYE EVERY BEDTIME
     Route: 031
     Dates: end: 20060101
  2. AGGRENOX [Concomitant]
  3. SYNTHROID [Concomitant]
  4. PREMARIN [Concomitant]
  5. CRESTOR [Concomitant]

REACTIONS (2)
  - CONJUNCTIVAL DISCOLOURATION [None]
  - DARK CIRCLES UNDER EYES [None]
